FAERS Safety Report 25945342 (Version 2)
Quarter: 2025Q4

REPORT INFORMATION
  Report Type: Report from Study
  Country: EU (occurrence: EU)
  Receive Date: 20251021
  Receipt Date: 20251027
  Transmission Date: 20260118
  Serious: Yes (Other)
  Sender: NOVARTIS
  Company Number: EU-002147023-NVSC2025FR161520

PATIENT
  Age: 64 Year
  Sex: Male
  Weight: 88 kg

DRUGS (4)
  1. VIJOICE [Suspect]
     Active Substance: ALPELISIB
     Indication: PIK3CA related overgrowth spectrum
     Dosage: 250 MG
     Route: 048
  2. VIJOICE [Suspect]
     Active Substance: ALPELISIB
     Dosage: 250 MG
     Route: 048
  3. ELIQUIS [Concomitant]
     Active Substance: APIXABAN
     Indication: Cerebrovascular accident
     Dosage: 5 MG, BID
     Route: 048
     Dates: start: 201912
  4. ELIQUIS [Concomitant]
     Active Substance: APIXABAN
     Indication: Atrial septal defect

REACTIONS (2)
  - Interstitial lung disease [Recovered/Resolved]
  - Adverse event [Unknown]

NARRATIVE: CASE EVENT DATE: 20250424
